FAERS Safety Report 9297429 (Version 1)
Quarter: 2013Q2

REPORT INFORMATION
  Report Type: Spontaneous
  Country: US (occurrence: None)
  Receive Date: 20130517
  Receipt Date: 20130517
  Transmission Date: 20140414
  Serious: Yes (Disabling, Other)
  Sender: FDA-Public Use
  Company Number: None

PATIENT
  Age: 61 Year
  Sex: Female
  Weight: 58.97 kg

DRUGS (5)
  1. HYDROXYCHLOROQUINE [Suspect]
     Indication: RHEUMATOID ARTHRITIS
     Dosage: 1 TABLET TWICE A DAY  TWICE  BY MOUTH
     Route: 048
     Dates: start: 1989, end: 20130330
  2. VOLTAREN [Concomitant]
  3. ADDERALL [Concomitant]
  4. BENEDRYL [Concomitant]
  5. CALCIUM SUPPLEMENT [Concomitant]

REACTIONS (1)
  - Urticaria [None]
